FAERS Safety Report 17374305 (Version 1)
Quarter: 2020Q1

REPORT INFORMATION
  Report Type: Spontaneous
  Country: DE (occurrence: DE)
  Receive Date: 20200206
  Receipt Date: 20200206
  Transmission Date: 20200409
  Serious: Yes (Other)
  Sender: FDA-Public Use
  Company Number: DE-TEVA-2020-DE-1182391

PATIENT
  Sex: Female
  Weight: 49 kg

DRUGS (13)
  1. CISPLATIN. [Suspect]
     Active Substance: CISPLATIN
     Indication: DIFFUSE LARGE B-CELL LYMPHOMA
     Dosage: UNK UNK, CYCLIC (FOUR CYCLES, GEMCITABINE 750 MG/M2/CARBOPLATIN AUC 4/DEXAMETHASONE 40 MG)
     Route: 065
     Dates: start: 201702, end: 201704
  2. RITUXIMAB. [Suspect]
     Active Substance: RITUXIMAB
     Indication: DIFFUSE LARGE B-CELL LYMPHOMA
     Dosage: UNK UNK, CYCLIC (SIX CYCLES)
     Route: 065
     Dates: start: 20141029, end: 201502
  3. IFOSFAMIDE. [Concomitant]
     Active Substance: IFOSFAMIDE
     Indication: DIFFUSE LARGE B-CELL LYMPHOMA
     Dosage: (ONE CYCLE)
     Route: 065
     Dates: start: 20200104
  4. CHOP [Suspect]
     Active Substance: CYCLOPHOSPHAMIDE\DOXORUBICIN\PREDNISONE\VINCRISTINE
     Indication: DIFFUSE LARGE B-CELL LYMPHOMA
     Dosage: (SIX CYCLES)
     Route: 065
     Dates: start: 20141029, end: 201502
  5. DEXAMETHASONE. [Suspect]
     Active Substance: DEXAMETHASONE
     Indication: DIFFUSE LARGE B-CELL LYMPHOMA
     Dosage: UNK UNK, CYCLIC (FOUR CYCLES, GEMCITABINE 750 MG/M2/CARBOPLATIN AUC 4/DEXAMETHASONE 40 MG)
     Route: 065
     Dates: start: 201702, end: 201704
  6. BENDAMUSTINE [Suspect]
     Active Substance: BENDAMUSTINE
     Indication: DIFFUSE LARGE B-CELL LYMPHOMA
     Dosage: (SIX CYCLES)
     Route: 042
     Dates: start: 201902, end: 201907
  7. GEMCITABINE. [Suspect]
     Active Substance: GEMCITABINE
     Indication: DIFFUSE LARGE B-CELL LYMPHOMA
     Dosage: UNK UNK, CYCLIC (FOUR CYCLES, GEMCITABINE 750 MG/M2/CARBOPLATIN AUC 4/DEXAMETHASONE 40 MG)
     Route: 065
     Dates: start: 201702, end: 201704
  8. RITUXIMAB. [Suspect]
     Active Substance: RITUXIMAB
     Dosage: 375 MG/M2, CYCLIC (FOUR CYCLES)
     Route: 065
     Dates: start: 201702, end: 201704
  9. RITUXIMAB. [Suspect]
     Active Substance: RITUXIMAB
     Dosage: UNK UNK, CYCLIC (SIX CYCLES)
     Route: 065
     Dates: start: 201902, end: 201907
  10. PREDNISONE. [Concomitant]
     Active Substance: PREDNISONE
     Indication: DIFFUSE LARGE B-CELL LYMPHOMA
     Route: 065
  11. PIXANTRONE [Concomitant]
     Active Substance: PIXANTRONE
     Indication: DIFFUSE LARGE B-CELL LYMPHOMA
     Dosage: ONE CYCLE
     Route: 065
     Dates: start: 201908, end: 201909
  12. METHOTREXATE. [Concomitant]
     Active Substance: METHOTREXATE
     Indication: DIFFUSE LARGE B-CELL LYMPHOMA
     Route: 065
  13. VP-16 [Concomitant]
     Active Substance: ETOPOSIDE
     Indication: DIFFUSE LARGE B-CELL LYMPHOMA
     Route: 065

REACTIONS (2)
  - Drug ineffective for unapproved indication [Unknown]
  - Disease progression [Unknown]
